FAERS Safety Report 11188409 (Version 1)
Quarter: 2015Q2

REPORT INFORMATION
  Report Type: Spontaneous
  Country: US (occurrence: US)
  Receive Date: 20150615
  Receipt Date: 20150615
  Transmission Date: 20150821
  Serious: Yes (Hospitalization)
  Sender: FDA-Public Use
  Company Number: US-JNJFOC-20150505048

PATIENT
  Age: 56 Year
  Sex: Male

DRUGS (3)
  1. REMICADE [Suspect]
     Active Substance: INFLIXIMAB
     Indication: GASTROINTESTINAL DISORDER
     Route: 042
     Dates: start: 20150506
  2. REMICADE [Suspect]
     Active Substance: INFLIXIMAB
     Indication: GASTROINTESTINAL DISORDER
     Route: 042
     Dates: start: 20150426
  3. YERVOY [Concomitant]
     Active Substance: IPILIMUMAB
     Indication: MALIGNANT MELANOMA
     Route: 065

REACTIONS (3)
  - Product use issue [Unknown]
  - Anaphylactic reaction [Unknown]
  - Infusion related reaction [Unknown]

NARRATIVE: CASE EVENT DATE: 20150426
